FAERS Safety Report 15860014 (Version 3)
Quarter: 2019Q1

REPORT INFORMATION
  Report Type: Spontaneous
  Country: DK (occurrence: DK)
  Receive Date: 20190123
  Receipt Date: 20190304
  Transmission Date: 20190417
  Serious: Yes (Hospitalization, Other)
  Sender: FDA-Public Use
  Company Number: DK-MYLANLABS-2019M1006024

PATIENT
  Age: 32 Year
  Sex: Female
  Weight: 52 kg

DRUGS (19)
  1. SPIRONOLACTONE. [Suspect]
     Active Substance: SPIRONOLACTONE
     Indication: DIARRHOEA
     Dosage: UNK
  2. NATALIZUMAB [Suspect]
     Active Substance: NATALIZUMAB
     Indication: CROHN^S DISEASE
     Dosage: UNKNOWN
     Route: 065
  3. IMODIUM [Concomitant]
     Active Substance: LOPERAMIDE HYDROCHLORIDE
     Indication: DIARRHOEA
     Dosage: UNKNOWN DOSE
  4. CHOLESTAGEL [Concomitant]
     Active Substance: COLESEVELAM HYDROCHLORIDE
     Indication: BILE ACID MALABSORPTION
     Dosage: 1875 MILLIGRAM, QD(625 MG, 3X/DAY (TID))
  5. ADALIMUMAB [Suspect]
     Active Substance: ADALIMUMAB
     Indication: CROHN^S DISEASE
     Dosage: UNKNOWN DOSE
     Route: 065
  6. LEVETIRACETAM. [Concomitant]
     Active Substance: LEVETIRACETAM
     Indication: DEPRESSION
     Dosage: 1500 MILLIGRAM, QD
     Route: 065
  7. VEDOLIZUMAB [Suspect]
     Active Substance: VEDOLIZUMAB
     Indication: CROHN^S DISEASE
     Dosage: UNKNOWN
     Route: 065
  8. ESCITALOPRAM [Concomitant]
     Active Substance: ESCITALOPRAM OXALATE
     Indication: DEPRESSION
     Dosage: 40 MILLIGRAM, QD
  9. COLESEVELAM [Concomitant]
     Active Substance: COLESEVELAM
     Indication: CROHN^S DISEASE
     Dosage: 1875 MILLIGRAM, QD
     Route: 065
  10. LEVETIRACETAM. [Concomitant]
     Active Substance: LEVETIRACETAM
     Dosage: UNK
     Route: 065
  11. VENLAFAXINE HYDROCHLORIDE. [Concomitant]
     Active Substance: VENLAFAXINE HYDROCHLORIDE
     Indication: DEPRESSION
     Dosage: 225 MILLIGRAM, QD
  12. QUESTRAN [Concomitant]
     Active Substance: CHOLESTYRAMINE
     Indication: BILE ACID MALABSORPTION
     Dosage: UNKNOWN DOSE
  13. CODEINE PHOSPHATE [Concomitant]
     Active Substance: CODEINE PHOSPHATE
     Indication: DIARRHOEA
     Dosage: UNKNOWN DOSE
  14. INFLIXIMAB [Suspect]
     Active Substance: INFLIXIMAB
     Indication: CROHN^S DISEASE
     Dosage: UNKNOWN
     Route: 065
  15. LAMOTRIGINE. [Concomitant]
     Active Substance: LAMOTRIGINE
     Indication: EPILEPSY
     Dosage: 400 MILLIGRAM, QD
     Route: 065
  16. MERCAPTOPURINE. [Suspect]
     Active Substance: MERCAPTOPURINE
     Indication: CROHN^S DISEASE
     Dosage: LOW-DOSE
     Route: 065
  17. OCTREOTIDE. [Suspect]
     Active Substance: OCTREOTIDE
     Indication: DIARRHOEA
     Dosage: UNK
  18. LIRAGLUTIDE [Suspect]
     Active Substance: LIRAGLUTIDE
     Indication: DIARRHOEA
     Dosage: UNK
  19. LOPERAMIDE [Concomitant]
     Active Substance: LOPERAMIDE
     Indication: BILE ACID MALABSORPTION
     Dosage: 2 TO 8 MG
     Route: 065

REACTIONS (7)
  - Product use in unapproved indication [Unknown]
  - Bile acid malabsorption [Recovering/Resolving]
  - Functional gastrointestinal disorder [Recovering/Resolving]
  - Drug ineffective [Unknown]
  - Off label use [Unknown]
  - Abdominal pain [Unknown]
  - Clostridium difficile colitis [Unknown]
